FAERS Safety Report 16071022 (Version 2)
Quarter: 2019Q1

REPORT INFORMATION
  Report Type: Report from Study
  Country: None (occurrence: BR)
  Receive Date: 20190314
  Receipt Date: 20190314
  Transmission Date: 20190418
  Serious: Yes (Other)
  Sender: FDA-Public Use
  Company Number: BR-ABBVIE-19K-020-2697169-00

PATIENT
  Sex: Female

DRUGS (1)
  1. HUMIRA [Suspect]
     Active Substance: ADALIMUMAB
     Indication: CROHN^S DISEASE
     Route: 058
     Dates: start: 20170515

REACTIONS (3)
  - Bartholinitis [Recovered/Resolved]
  - Noninfective bartholinitis [Unknown]
  - Bartholin^s cyst [Unknown]

NARRATIVE: CASE EVENT DATE: 2018
